FAERS Safety Report 16864075 (Version 2)
Quarter: 2019Q4

REPORT INFORMATION
  Report Type: Spontaneous
  Country: PH (occurrence: PH)
  Receive Date: 20190927
  Receipt Date: 20191016
  Transmission Date: 20200122
  Serious: Yes (Hospitalization)
  Sender: FDA-Public Use
  Company Number: PH-ARBOR PHARMACEUTICALS, LLC-PH-2019ARB001379

PATIENT
  Sex: Male

DRUGS (1)
  1. TRIPTODUR [Suspect]
     Active Substance: TRIPTORELIN
     Indication: PROSTATE CANCER
     Dosage: UNK, SINGLE
     Route: 058
     Dates: start: 20190903, end: 20190903

REACTIONS (1)
  - Hypersensitivity [Recovered/Resolved]

NARRATIVE: CASE EVENT DATE: 20190903
